FAERS Safety Report 4547194-5 (Version None)
Quarter: 2005Q1

REPORT INFORMATION
  Report Type: 
  Country: None (occurrence: None)
  Receive Date: 20050107
  Receipt Date: 20050103
  Transmission Date: 20050727
  Serious: Yes (Other)
  Sender: FDA-Public Use
  Company Number: PHEH2005US00440

PATIENT
  Age: 65 Year
  Sex: Female
  Weight: 101 kg

DRUGS (4)
  1. ZELNORM [Suspect]
     Indication: CONSTIPATION
     Dosage: 6 MG, BID
     Dates: start: 20040901, end: 20040901
  2. ZELNORM [Suspect]
     Dosage: 6 MG, QD
     Route: 048
     Dates: start: 20040901, end: 20040901
  3. ZELNORM [Suspect]
     Dosage: 6 MG, BID
     Route: 048
     Dates: start: 20041104, end: 20041220
  4. PROCARDIA [Concomitant]
     Indication: RAYNAUD'S PHENOMENON
     Dosage: 30 MG, QD

REACTIONS (6)
  - COLONOSCOPY ABNORMAL [None]
  - DIARRHOEA [None]
  - DIVERTICULUM [None]
  - DIZZINESS [None]
  - SYNCOPE [None]
  - WEIGHT DECREASED [None]
